FAERS Safety Report 7376717-6 (Version None)
Quarter: 2011Q1

REPORT INFORMATION
  Report Type: 
  Country: None (occurrence: None)
  Receive Date: 20110325
  Receipt Date: 20110314
  Transmission Date: 20110831
  Serious: Yes (Hospitalization, Other)
  Sender: FDA-Public Use
  Company Number: US-BAYER-2011-018494

PATIENT
  Sex: Male

DRUGS (13)
  1. UNCODEABLE ^INVESTIGATIONAL DRUG^ [Suspect]
     Indication: THROMBOSIS PROPHYLAXIS
     Dosage: 10 MG, QD
     Route: 048
     Dates: start: 20100108, end: 20100119
  2. WARFARIN SODIUM [Suspect]
     Indication: THROMBOSIS PROPHYLAXIS
     Dosage: UNK
     Route: 048
     Dates: start: 20100108, end: 20100118
  3. SIMVASTATIN [Concomitant]
  4. COLCHICINE [Concomitant]
  5. LASIX [Concomitant]
  6. COUMADIN [Suspect]
     Indication: THROMBOSIS PROPHYLAXIS
     Dosage: UNK
     Dates: start: 20100924, end: 20110103
  7. LIDOCAINE [Concomitant]
  8. ASPIRIN [Suspect]
     Dosage: DAILY DOSE 81 MG
  9. METOLAZONE [Concomitant]
  10. NITROGLYCERIN [Concomitant]
  11. PROZAC [Concomitant]
  12. LISINOPRIL [Concomitant]
  13. DECITABINE [Concomitant]
     Indication: MYELODYSPLASTIC SYNDROME
     Dosage: UNK
     Dates: start: 20100301

REACTIONS (4)
  - GASTROINTESTINAL HAEMORRHAGE [None]
  - HAEMATOCHEZIA [None]
  - PANCYTOPENIA [None]
  - ATRIAL FIBRILLATION [None]
